FAERS Safety Report 18661617 (Version 1)
Quarter: 2020Q4

REPORT INFORMATION
  Report Type: Spontaneous
  Country: CA (occurrence: CA)
  Receive Date: 20201224
  Receipt Date: 20201224
  Transmission Date: 20210114
  Serious: Yes (Hospitalization)
  Sender: FDA-Public Use
  Company Number: CA-TEVA-2020-CA-1860423

PATIENT
  Age: 60 Year
  Sex: Male

DRUGS (1)
  1. CARBOPLATIN. [Suspect]
     Active Substance: CARBOPLATIN
     Indication: GLIOBLASTOMA
     Dosage: CEREBRAL INTRA-ARTERIAL CHEMOTHERAPY (CIAC)
     Route: 013

REACTIONS (6)
  - General physical health deterioration [Recovering/Resolving]
  - Dysgeusia [Recovering/Resolving]
  - Quality of life decreased [Recovering/Resolving]
  - Nausea [Recovering/Resolving]
  - Weight decreased [Recovering/Resolving]
  - Hypophagia [Recovering/Resolving]
